FAERS Safety Report 11415124 (Version 1)
Quarter: 2015Q3

REPORT INFORMATION
  Report Type: Spontaneous
  Country: US (occurrence: None)
  Receive Date: 20150824
  Receipt Date: 20150824
  Transmission Date: 20151125
  Serious: Yes (Disabling)
  Sender: FDA-Public Use
  Company Number: None

PATIENT
  Age: 43 Year
  Sex: Female
  Weight: 66.23 kg

DRUGS (4)
  1. CARBIDOPA/LEVODOPA [Suspect]
     Active Substance: CARBIDOPA\LEVODOPA
     Indication: TORTICOLLIS
     Route: 048
  2. CARBIDOPA/LEVODOPA [Suspect]
     Active Substance: CARBIDOPA\LEVODOPA
     Indication: TORTICOLLIS
     Route: 048
  3. CARBIDOPA/LEVODOPA [Suspect]
     Active Substance: CARBIDOPA\LEVODOPA
     Indication: MUSCLE SPASMS
     Route: 048
  4. CARBIDOPA/LEVODOPA [Suspect]
     Active Substance: CARBIDOPA\LEVODOPA
     Indication: MUSCLE SPASMS
     Route: 048

REACTIONS (14)
  - Nervousness [None]
  - Feeling jittery [None]
  - Product substitution issue [None]
  - Product container seal issue [None]
  - Anxiety [None]
  - Dry mouth [None]
  - Condition aggravated [None]
  - Drug administration error [None]
  - Cognitive disorder [None]
  - Visual impairment [None]
  - Muscle twitching [None]
  - Speech disorder [None]
  - Muscle spasms [None]
  - Back pain [None]

NARRATIVE: CASE EVENT DATE: 20020613
